FAERS Safety Report 7329947-3 (Version None)
Quarter: 2011Q1

REPORT INFORMATION
  Report Type: 
  Country: None (occurrence: None)
  Receive Date: 20110303
  Receipt Date: 20110221
  Transmission Date: 20110831
  Serious: No
  Sender: FDA-Public Use
  Company Number: US-BAYER-2011-017537

PATIENT
  Sex: Female

DRUGS (1)
  1. MIRENA [Suspect]
     Dosage: UNK
     Dates: start: 20100526, end: 20100929

REACTIONS (7)
  - ALOPECIA [None]
  - FEELING COLD [None]
  - ACNE [None]
  - PALPITATIONS [None]
  - MOOD SWINGS [None]
  - WEIGHT INCREASED [None]
  - LOSS OF LIBIDO [None]
